FAERS Safety Report 5403556-5 (Version None)
Quarter: 2007Q3

REPORT INFORMATION
  Report Type: 
  Country: None (occurrence: None)
  Receive Date: 20070730
  Receipt Date: 20070719
  Transmission Date: 20080115
  Serious: Yes (Hospitalization)
  Sender: FDA-Public Use
  Company Number: 2007-157585-NL

PATIENT
  Age: 16 Year
  Sex: Female

DRUGS (7)
  1. MIRTAZAPINE [Suspect]
     Indication: DEPRESSION
     Dosage: 30 MG QD/NI
     Route: 048
     Dates: start: 20070101, end: 20070509
  2. MIRTAZAPINE [Suspect]
     Indication: DEPRESSION
     Dosage: 30 MG QD/NI
     Route: 048
     Dates: start: 20070510
  3. RISPERIDONE [Concomitant]
  4. OLANZAPINE [Concomitant]
  5. ARIPIPRAZOLE [Concomitant]
  6. LORAZEPAM [Concomitant]
  7. DIAZEPAM [Concomitant]

REACTIONS (3)
  - DELUSION [None]
  - HALLUCINATION, AUDITORY [None]
  - PSYCHOTIC DISORDER [None]
